FAERS Safety Report 7984382-X (Version None)
Quarter: 2011Q4

REPORT INFORMATION
  Report Type: 
  Country: None (occurrence: None)
  Receive Date: 20111214
  Receipt Date: 20111201
  Transmission Date: 20120403
  Serious: Yes (Hospitalization)
  Sender: FDA-Public Use
  Company Number: US-DEXPHARM-20112020

PATIENT
  Sex: Male
  Weight: 99 kg

DRUGS (11)
  1. OMEPRAZOLE [Suspect]
     Indication: DYSPEPSIA
     Dosage: 20 MG ONCE A DAY, ORAL
     Route: 048
     Dates: start: 20080101, end: 20110801
  2. ASPIRIN [Concomitant]
  3. MORNIFLUMATE [Concomitant]
  4. CARVEDILOL [Concomitant]
  5. HUMULIN (INSULIN) [Concomitant]
  6. LISINOPRIL [Concomitant]
  7. CLOPIDOGREL [Concomitant]
  8. GABAPENTIN [Concomitant]
  9. SIMVASTATIN [Concomitant]
  10. PRILOSEC [Suspect]
     Indication: DYSPEPSIA
     Dates: end: 20110801
  11. AMITRIPTYLINE HCL [Concomitant]

REACTIONS (6)
  - CHEST PAIN [None]
  - NAUSEA [None]
  - ERUCTATION [None]
  - FLATULENCE [None]
  - ABDOMINAL DISTENSION [None]
  - BURNING SENSATION [None]
